FAERS Safety Report 6932169-9 (Version None)
Quarter: 2010Q3

REPORT INFORMATION
  Report Type: 
  Country: None (occurrence: None)
  Receive Date: 20100819
  Receipt Date: 20100812
  Transmission Date: 20110219
  Serious: Yes (Hospitalization)
  Sender: FDA-Public Use
  Company Number: B0669595A

PATIENT
  Sex: Female

DRUGS (8)
  1. ARIXTRA [Suspect]
     Indication: PULMONARY EMBOLISM
     Dosage: 7.5MG PER DAY
     Route: 058
     Dates: start: 20090108, end: 20090112
  2. PREVISCAN [Suspect]
     Indication: PULMONARY EMBOLISM
     Route: 048
     Dates: start: 20090108, end: 20090116
  3. FONZYLANE [Concomitant]
     Dosage: 3UNIT PER DAY
     Route: 065
  4. ASASANTINE [Concomitant]
     Dosage: 2UNIT PER DAY
     Route: 065
  5. FENOFIBRATE [Concomitant]
     Route: 065
  6. VASTAREL [Concomitant]
     Dosage: 70MG PER DAY
     Route: 065
  7. BIMATOPROST AND TIMOLOL MALEATE [Concomitant]
     Route: 047
  8. CARBOMER [Concomitant]
     Route: 047

REACTIONS (4)
  - ARTHRALGIA [None]
  - HAEMOGLOBIN DECREASED [None]
  - INTERNATIONAL NORMALISED RATIO INCREASED [None]
  - MUSCLE HAEMORRHAGE [None]
